FAERS Safety Report 6743930-8 (Version None)
Quarter: 2010Q2

REPORT INFORMATION
  Report Type: 
  Country: None (occurrence: None)
  Receive Date: 20100527
  Receipt Date: 20100514
  Transmission Date: 20101027
  Serious: Yes (Other)
  Sender: FDA-Public Use
  Company Number: PHEH2010US03455

PATIENT
  Sex: Female

DRUGS (7)
  1. ELIDEL [Suspect]
  2. ANTIDEPRESSANTS [Concomitant]
  3. PROCHLORPERAZINE MALEATE [Concomitant]
  4. CALCIUM CARBONATE [Concomitant]
  5. MULTI-VITAMINS [Concomitant]
  6. VITAMIN B COMPLEX CAP [Concomitant]
  7. CELEXA [Concomitant]

REACTIONS (27)
  - ACTINIC KERATOSIS [None]
  - ARTHRALGIA [None]
  - BREAST CANCER [None]
  - BREAST LUMP REMOVAL [None]
  - CERVICAL CYST [None]
  - DERMATITIS [None]
  - DRUG ERUPTION [None]
  - DYSPLASTIC NAEVUS SYNDROME [None]
  - ECZEMA [None]
  - FATIGUE [None]
  - HEPATIC STEATOSIS [None]
  - HODGKIN'S DISEASE [None]
  - KYPHOSCOLIOSIS [None]
  - LIBIDO DECREASED [None]
  - LYMPHADENECTOMY [None]
  - LYMPHADENOPATHY [None]
  - METASTATIC NEOPLASM [None]
  - MOLE EXCISION [None]
  - OSTEOARTHRITIS [None]
  - RASH PRURITIC [None]
  - SEBORRHOEIC KERATOSIS [None]
  - SKIN DISCOLOURATION [None]
  - SKIN FIBROSIS [None]
  - SKIN LACERATION [None]
  - SKIN LESION [None]
  - SKIN PAPILLOMA [None]
  - URTICARIA [None]
